FAERS Safety Report 5187975-0 (Version None)
Quarter: 2006Q4

REPORT INFORMATION
  Report Type: 
  Country: None (occurrence: None)
  Receive Date: 20061215
  Receipt Date: 20061215
  Transmission Date: 20070319
  Serious: Yes (Other)
  Sender: FDA-Public Use
  Company Number: None

PATIENT
  Age: 87 Year
  Sex: Male
  Weight: 55.4 kg

DRUGS (1)
  1. TYLENOL [Suspect]

REACTIONS (1)
  - HEPATIC ENZYME ABNORMAL [None]
